FAERS Safety Report 4917130-8 (Version None)
Quarter: 2006Q1

REPORT INFORMATION
  Report Type: 
  Country: None (occurrence: None)
  Receive Date: 20060214
  Receipt Date: 20060130
  Transmission Date: 20060701
  Serious: Yes (Other)
  Sender: FDA-Public Use
  Company Number: ES200602000384

PATIENT
  Age: 60 Year
  Sex: Female

DRUGS (1)
  1. RALOXIFENE HCL [Suspect]
     Dosage: 60 MG, DAILY (1/D), ORAL
     Route: 048

REACTIONS (1)
  - INTRAOCULAR PRESSURE INCREASED [None]
